FAERS Safety Report 9880252 (Version 2)
Quarter: 2014Q1

REPORT INFORMATION
  Report Type: Report from Study
  Country: DE (occurrence: DE)
  Receive Date: 20140207
  Receipt Date: 20140207
  Transmission Date: 20141002
  Serious: Yes (Hospitalization, Other)
  Sender: FDA-Public Use
  Company Number: DE-BRISTOL-MYERS SQUIBB COMPANY-19798065

PATIENT
  Age: 46 Year
  Sex: Female

DRUGS (2)
  1. ABATACEPT [Suspect]
     Indication: RHEUMATIC DISORDER
     Dosage: FEB09-SEP09,SEP11-MAY13,DOSE: LF20
     Dates: start: 200902, end: 20130517
  2. LEFLUNOMIDE [Suspect]
     Indication: RHEUMATIC DISORDER

REACTIONS (4)
  - Pseudoradicular syndrome [Recovered/Resolved]
  - Hand fracture [Unknown]
  - Diabetes mellitus [Unknown]
  - Rash pustular [Unknown]
